FAERS Safety Report 14679260 (Version 1)
Quarter: 2018Q1

REPORT INFORMATION
  Report Type: Spontaneous
  Country: US (occurrence: US)
  Receive Date: 20180326
  Receipt Date: 20180326
  Transmission Date: 20180509
  Serious: No
  Sender: FDA-Public Use
  Company Number: US-PFIZER INC-2018122042

PATIENT
  Age: 35 Year
  Sex: Female
  Weight: 62.6 kg

DRUGS (3)
  1. NEURONTIN [Suspect]
     Active Substance: GABAPENTIN
     Indication: NEURALGIA
     Dosage: 1800 MG, DAILY (600MG TABLETS; SHE HAS TO TAKE 3 TABLETS AT NIGHT FOR A TOTAL OF 1800MG)
     Route: 048
     Dates: start: 2015
  2. NEURONTIN [Suspect]
     Active Substance: GABAPENTIN
     Indication: MUSCLE SPASMS
  3. NEURONTIN [Suspect]
     Active Substance: GABAPENTIN
     Indication: MUSCLE CONTRACTIONS INVOLUNTARY

REACTIONS (1)
  - Drug ineffective for unapproved indication [Not Recovered/Not Resolved]
